FAERS Safety Report 10714940 (Version 1)
Quarter: 2015Q1

REPORT INFORMATION
  Report Type: Spontaneous
  Country: US (occurrence: US)
  Receive Date: 20150115
  Receipt Date: 20150115
  Transmission Date: 20150721
  Serious: No
  Sender: FDA-Public Use
  Company Number: US-GLAXOSMITHKLINE-US2014GSK047221

PATIENT
  Sex: Female
  Weight: 49.89 kg

DRUGS (10)
  1. OXCARBAZEPINE. [Concomitant]
     Active Substance: OXCARBAZEPINE
  2. OMEPRAZOLE. [Concomitant]
     Active Substance: OMEPRAZOLE
  3. ORABASE [Concomitant]
     Active Substance: CARBOXYMETHYLCELLULOSE SODIUM\GELATIN\PECTIN
  4. VALSARTAN. [Concomitant]
     Active Substance: VALSARTAN
  5. MULTIVITAMINS [Concomitant]
     Active Substance: VITAMINS
  6. TYKERB [Suspect]
     Active Substance: LAPATINIB DITOSYLATE
     Indication: PRODUCT USED FOR UNKNOWN INDICATION
     Dosage: 1500 MG, QD
     Route: 048
     Dates: start: 20141003
  7. DORZOLAMIDE/TIMOLOL EYE DROPS [Concomitant]
  8. ENSURE HIGH PROTEIN (NUTRITIONAL SUPPLEMENT) [Concomitant]
  9. FUROSEMIDE. [Concomitant]
     Active Substance: FUROSEMIDE
  10. ANASTROZOLE. [Concomitant]
     Active Substance: ANASTROZOLE
     Dosage: UNK

REACTIONS (1)
  - Weight decreased [Unknown]
